FAERS Safety Report 18516595 (Version 1)
Quarter: 2020Q4

REPORT INFORMATION
  Report Type: Spontaneous
  Country: US (occurrence: US)
  Receive Date: 20201118
  Receipt Date: 20201118
  Transmission Date: 20210114
  Serious: No
  Sender: FDA-Public Use
  Company Number: US-MYLANLABS-2020M1089728

PATIENT
  Sex: Female
  Weight: 72 kg

DRUGS (3)
  1. ALLOPURINOL. [Suspect]
     Active Substance: ALLOPURINOL
     Indication: GOUT
     Dosage: 300MG-NOT TAKEN AS PRESCRIBED;ONLY TAKES HALF 150 MG DAILY
  2. CHANTIX [Suspect]
     Active Substance: VARENICLINE TARTRATE
     Indication: SMOKING CESSATION THERAPY
     Dosage: UNK
     Dates: end: 202006
  3. CHANTIX [Suspect]
     Active Substance: VARENICLINE TARTRATE
     Dosage: 1MG TABLET BY MOUTH PRESCRIBED AS 2XDAY;WHEN RESTARTS CUTS 1MG TABLET IN HALF TAKES FOR ABOUT 3 DAYS
     Dates: end: 202007

REACTIONS (2)
  - Intentional product misuse [Unknown]
  - Tobacco user [Recovering/Resolving]
